FAERS Safety Report 9217026 (Version 1)
Quarter: 2013Q2

REPORT INFORMATION
  Report Type: Spontaneous
  Country: US (occurrence: None)
  Receive Date: 20130405
  Receipt Date: 20130405
  Transmission Date: 20140414
  Serious: Yes (Life-Threatening)
  Sender: FDA-Public Use
  Company Number: None

PATIENT
  Age: 47 Year
  Sex: Male
  Weight: 117.94 kg

DRUGS (2)
  1. READI-CAT 2.1% BARIUM SULFATE EZ EM [Suspect]
     Indication: SCAN WITH CONTRAST
     Dosage: 20 OZ 1 PO
     Route: 048
     Dates: start: 20130404, end: 20130404
  2. READI-CAT BARIUM SULFATE #723 [Concomitant]

REACTIONS (6)
  - Impaired work ability [None]
  - Dizziness [None]
  - Migraine [None]
  - Paraesthesia [None]
  - Vision blurred [None]
  - Reaction to drug excipients [None]
